FAERS Safety Report 6037245-3 (Version None)
Quarter: 2009Q1

REPORT INFORMATION
  Report Type: 
  Country: None (occurrence: None)
  Receive Date: 20090114
  Receipt Date: 20090109
  Transmission Date: 20090719
  Serious: Yes (Hospitalization)
  Sender: FDA-Public Use
  Company Number: A0718138A

PATIENT
  Age: 46 Year
  Sex: Male
  Weight: 90.9 kg

DRUGS (10)
  1. AVANDIA [Suspect]
     Dosage: 8MG PER DAY
     Route: 048
     Dates: start: 20040119, end: 20050522
  2. GLUCOPHAGE [Concomitant]
  3. METOPROLOL [Concomitant]
  4. NAPROSYN [Concomitant]
  5. GLYBURIDE [Concomitant]
  6. DARVOCET [Concomitant]
  7. ASPIRIN [Concomitant]
  8. PROTONIX [Concomitant]
  9. AMBIEN [Concomitant]
  10. CHERATUSSIN [Concomitant]

REACTIONS (2)
  - HEART INJURY [None]
  - MYOCARDIAL INFARCTION [None]
